FAERS Safety Report 8550626-9 (Version None)
Quarter: 2012Q3

REPORT INFORMATION
  Report Type: 
  Country: None (occurrence: None)
  Receive Date: 20120730
  Receipt Date: 20110629
  Transmission Date: 20120928
  Serious: No
  Sender: FDA-Public Use
  Company Number: US-ALLERGAN-1108914US

PATIENT
  Age: 80 Year
  Sex: Female

DRUGS (1)
  1. LUMIGAN [Suspect]
     Indication: GLAUCOMA
     Dosage: 2 GTT, QD
     Route: 047
     Dates: start: 20110501, end: 20110601

REACTIONS (7)
  - MEMORY IMPAIRMENT [None]
  - HAIR GROWTH ABNORMAL [None]
  - OCULAR HYPERAEMIA [None]
  - SKIN HYPERPIGMENTATION [None]
  - APHASIA [None]
  - EXTRASYSTOLES [None]
  - DRY EYE [None]
